FAERS Safety Report 15720481 (Version 2)
Quarter: 2020Q2

REPORT INFORMATION
  Report Type: Spontaneous
  Country: BR (occurrence: BR)
  Receive Date: 20181213
  Receipt Date: 20200403
  Transmission Date: 20200713
  Serious: Yes (Hospitalization)
  Sender: FDA-Public Use
  Company Number: BR-BIOGEN-2018BI00669415

PATIENT
  Age: 1 Year
  Sex: Male

DRUGS (1)
  1. SPINRAZA [Suspect]
     Active Substance: NUSINERSEN
     Indication: SPINAL MUSCULAR ATROPHY
     Route: 050
     Dates: start: 20180110

REACTIONS (12)
  - Tonsillitis [Unknown]
  - Sepsis [Unknown]
  - Post lumbar puncture syndrome [Unknown]
  - Procedural pain [Unknown]
  - Dyspnoea [Unknown]
  - Pneumonia [Unknown]
  - Wheezing [Unknown]
  - Pyrexia [Unknown]
  - Increased viscosity of upper respiratory secretion [Unknown]
  - Abdominal distension [Unknown]
  - Sinusitis [Unknown]
  - Oxygen saturation decreased [Unknown]

NARRATIVE: CASE EVENT DATE: 20180208
